FAERS Safety Report 23470276 (Version 1)
Quarter: 2024Q1

REPORT INFORMATION
  Report Type: Spontaneous
  Country: GB (occurrence: GB)
  Receive Date: 20240202
  Receipt Date: 20240202
  Transmission Date: 20240410
  Serious: Yes (Hospitalization)
  Sender: FDA-Public Use
  Company Number: None

PATIENT
  Age: 21 Year
  Sex: Female
  Weight: 59 kg

DRUGS (10)
  1. IBUPROFEN [Suspect]
     Active Substance: IBUPROFEN
     Indication: Product used for unknown indication
     Route: 065
  2. CETRABEN [LIGHT LIQUID PARAFFIN;WHITE SOFT PARAFFIN] [Concomitant]
     Dosage: APPLY WHEN REQUIRED - AS EMOLLIENT TO FACE
     Dates: start: 20230925, end: 20240104
  3. ELOCON [Concomitant]
     Active Substance: MOMETASONE FUROATE
     Dosage: APPLY THINLY FOR 2 WEEKS DURING SEVE...
     Route: 061
     Dates: start: 20230925, end: 20240104
  4. FERROUS FUMARATE [Concomitant]
     Active Substance: FERROUS FUMARATE
     Dosage: FOR 3 MONTH COURSE
     Dates: start: 20210225, end: 20240104
  5. FEXOFENADINE [Concomitant]
     Active Substance: FEXOFENADINE HYDROCHLORIDE
     Dosage: 1 DOSAGE FORM, QD
     Dates: start: 20230227, end: 20240104
  6. HYALURONATE SODIUM [Concomitant]
     Active Substance: HYALURONATE SODIUM
     Dosage: IN THE AFFECTED EYE(S) EVERY THREE...
     Dates: start: 20230227, end: 20240104
  7. PROTOPIC [Concomitant]
     Active Substance: TACROLIMUS
     Indication: Eczema
     Dosage: APPLY THINLY WHEN ECZEMA SEVERE AND...
     Route: 061
     Dates: start: 20230925, end: 20240104
  8. NEUTROGENA T [COAL TAR] [Concomitant]
     Dosage: TO BE USED ONCE OR TWICE A WEEK AS DIRECTED
     Dates: start: 20210225, end: 20240104
  9. TRANEXAMIC ACID [Concomitant]
     Active Substance: TRANEXAMIC ACID
     Dosage: (TWO TABLETS) AS LONG AS ...
     Dates: start: 20210225, end: 20240104
  10. NORETHINDRONE [Concomitant]
     Active Substance: NORETHINDRONE
     Dosage: TO BE STARTED 3 DAYS BEFORE EXPECTED O...
     Dates: start: 20240109

REACTIONS (3)
  - Swelling [Recovered/Resolved]
  - Pain [Unknown]
  - Hypersensitivity [Unknown]
